FAERS Safety Report 8871588 (Version 1)
Quarter: 2012Q4

REPORT INFORMATION
  Report Type: 
  Country: US (occurrence: US)
  Receive Date: 20121026
  Receipt Date: 20121026
  Transmission Date: 20130627
  Serious: No
  Sender: FDA-Public Use
  Company Number: US-AMGEN-USASP2012048426

PATIENT
  Age: 66 Year
  Sex: Female
  Weight: 81.63 kg

DRUGS (12)
  1. ENBREL [Suspect]
     Indication: PRODUCT USED FOR UNKNOWN INDICATION
     Dosage: 50 mg, qwk
     Route: 058
  2. MOTRIN [Concomitant]
     Dosage: 400 mg, UNK
  3. PREMARIN [Concomitant]
     Dosage: 25 mg, UNK
  4. ATARAX                             /00058401/ [Concomitant]
     Dosage: 10 mg/5 ML
  5. METHOTREXATE [Concomitant]
     Dosage: 2.5 mg, UNK
  6. NEURONTIN [Concomitant]
     Dosage: 100 mg, UNK
  7. VICODIN [Concomitant]
     Dosage: 5-500 MG
  8. ROBAXIN [Concomitant]
     Dosage: 500 mg, UNK
  9. FOLIC ACID [Concomitant]
     Dosage: 1 mg, UNK
  10. CELEXA                             /00582602/ [Concomitant]
     Dosage: 10 mg, UNK
  11. VITAMIN B6 [Concomitant]
     Dosage: 50 mg, UNK
  12. VITAMIN D /00107901/ [Concomitant]
     Dosage: 400 UNK, UNK

REACTIONS (1)
  - Drug effect decreased [Unknown]
